FAERS Safety Report 18907883 (Version 1)
Quarter: 2021Q1

REPORT INFORMATION
  Report Type: Spontaneous
  Country: US (occurrence: US)
  Receive Date: 20210218
  Receipt Date: 20210218
  Transmission Date: 20210420
  Serious: Yes (Other)
  Sender: FDA-Public Use
  Company Number: US-AUROBINDO-AUR-APL-2018-006624

PATIENT
  Age: 5 Year
  Sex: Male
  Weight: 21 kg

DRUGS (6)
  1. MIDAZOLAM. [Concomitant]
     Active Substance: MIDAZOLAM
     Indication: ANALGESIC THERAPY
     Dosage: 10 MILLIGRAM
     Route: 048
  2. BUPIVACAINE;EPINEPHRINE [Concomitant]
     Indication: ANALGESIC THERAPY
     Dosage: 0.25% BUPIVACAINE AND EPINEPHRINE 1 : 200 000
     Route: 065
  3. MORPHINE [Concomitant]
     Active Substance: MORPHINE
     Indication: ANALGESIC THERAPY
     Dosage: 2 MILLIGRAM
     Route: 042
  4. DOLASETRON [Concomitant]
     Active Substance: DOLASETRON
     Indication: ANALGESIC THERAPY
     Dosage: 3 MILLIGRAM
     Route: 042
  5. KETOROLAC [Concomitant]
     Active Substance: KETOROLAC TROMETHAMINE
     Indication: ANALGESIC THERAPY
     Dosage: 10 MILLIGRAM
     Route: 042
  6. CLONIDINE. [Suspect]
     Active Substance: CLONIDINE
     Indication: ANALGESIC THERAPY
     Dosage: 200 MICROGRAM/MILLILITER,ONCE/SINLGE
     Route: 065

REACTIONS (2)
  - Somnolence [Recovered/Resolved]
  - Accidental overdose [Recovered/Resolved]
